FAERS Safety Report 12273792 (Version 1)
Quarter: 2016Q2

REPORT INFORMATION
  Report Type: Report from Study
  Country: AR (occurrence: AR)
  Receive Date: 20160415
  Receipt Date: 20160415
  Transmission Date: 20160815
  Serious: Yes (Hospitalization, Other)
  Sender: FDA-Public Use
  Company Number: AR-ABBVIE-16P-007-1606774-00

PATIENT
  Age: 69 Year
  Sex: Female

DRUGS (1)
  1. ZEMPLAR [Suspect]
     Active Substance: PARICALCITOL
     Indication: HYPERPARATHYROIDISM SECONDARY
     Route: 048
     Dates: start: 20160217

REACTIONS (5)
  - Patella fracture [Recovering/Resolving]
  - Fall [Recovering/Resolving]
  - Tibia fracture [Recovering/Resolving]
  - Fibula fracture [Recovering/Resolving]
  - Hand fracture [Recovering/Resolving]

NARRATIVE: CASE EVENT DATE: 20160401
